FAERS Safety Report 6197122-4 (Version None)
Quarter: 2009Q2

REPORT INFORMATION
  Report Type: 
  Country: None (occurrence: None)
  Receive Date: 20090518
  Receipt Date: 20090518
  Transmission Date: 20091009
  Serious: No
  Sender: FDA-Public Use
  Company Number: None

PATIENT
  Age: 58 Year
  Sex: Female
  Weight: 60.3284 kg

DRUGS (1)
  1. ALENDRONATE SODIUM [Suspect]
     Indication: RESORPTION BONE INCREASED
     Dosage: 1 TABLET 70 MG WEEKLY PO
     Route: 048
     Dates: start: 20090207, end: 20090524

REACTIONS (7)
  - ABDOMINAL PAIN [None]
  - DIARRHOEA [None]
  - FLATULENCE [None]
  - GASTROINTESTINAL PAIN [None]
  - MYALGIA [None]
  - PAIN IN EXTREMITY [None]
  - PARAESTHESIA [None]
